FAERS Safety Report 6030527-0 (Version None)
Quarter: 2009Q1

REPORT INFORMATION
  Report Type: 
  Country: None (occurrence: None)
  Receive Date: 20090106
  Receipt Date: 20090106
  Transmission Date: 20090719
  Serious: Yes (Hospitalization)
  Sender: FDA-Public Use
  Company Number: None

PATIENT
  Sex: Female
  Weight: 65 kg

DRUGS (1)
  1. CISPLATIN [Suspect]
     Dosage: 276 MG
     Dates: end: 20081208

REACTIONS (5)
  - NAUSEA [None]
  - NEUTROPHIL COUNT DECREASED [None]
  - PAIN [None]
  - URINARY TRACT INFECTION [None]
  - VOMITING [None]
